FAERS Safety Report 19575865 (Version 1)
Quarter: 2021Q3

REPORT INFORMATION
  Report Type: Spontaneous
  Country: US (occurrence: US)
  Receive Date: 20210716
  Receipt Date: 20210716
  Transmission Date: 20211014
  Serious: Yes (Hospitalization)
  Sender: FDA-Public Use
  Company Number: None

PATIENT
  Age: 66 Year
  Sex: Female

DRUGS (16)
  1. TADALAFIL 20 MG TAB [Suspect]
     Active Substance: TADALAFIL
     Indication: PULMONARY HYPERTENSION
     Route: 048
     Dates: start: 20210318
  2. ALBUTEROL HFA [Concomitant]
     Active Substance: ALBUTEROL SULFATE
  3. GABAPENTIN. [Concomitant]
     Active Substance: GABAPENTIN
  4. METHIMAZOLE. [Concomitant]
     Active Substance: METHIMAZOLE
  5. DOXYCYCL HYC [Concomitant]
     Active Substance: DOXYCYCLINE HYCLATE
  6. HYDROCO/APAP [Concomitant]
     Active Substance: ACETAMINOPHEN\HYDROCODONE
  7. TIZANIDINE. [Concomitant]
     Active Substance: TIZANIDINE
  8. AMBRISENTAN 10MG TAB [Suspect]
     Active Substance: AMBRISENTAN
     Indication: PULMONARY HYPERTENSION
     Route: 048
     Dates: start: 20210327
  9. CEFDINIR. [Concomitant]
     Active Substance: CEFDINIR
  10. PANTOPRAZOLE [Concomitant]
     Active Substance: PANTOPRAZOLE
  11. DIAZEPAM. [Concomitant]
     Active Substance: DIAZEPAM
  12. FLUTICASONE SPR [Concomitant]
  13. FOLIC ACID. [Concomitant]
     Active Substance: FOLIC ACID
  14. AZELASTINE SPR [Concomitant]
  15. BUMETANIDE. [Concomitant]
     Active Substance: BUMETANIDE
  16. METHOTREXATE. [Concomitant]
     Active Substance: METHOTREXATE

REACTIONS (4)
  - Pneumonia [None]
  - Diaphragmatic disorder [None]
  - Pain in extremity [None]
  - Arthralgia [None]

NARRATIVE: CASE EVENT DATE: 20210701
